FAERS Safety Report 6453759-6 (Version None)
Quarter: 2009Q4

REPORT INFORMATION
  Report Type: 
  Country: None (occurrence: None)
  Receive Date: 20091124
  Receipt Date: 20091028
  Transmission Date: 20100525
  Serious: No
  Sender: FDA-Public Use
  Company Number: US-BRISTOL-MYERS SQUIBB COMPANY-14834212

PATIENT
  Age: 63 Year
  Sex: Female

DRUGS (5)
  1. ONGLYZA [Suspect]
  2. AVANDIA [Concomitant]
  3. TOPROL-XL [Concomitant]
  4. VYTORIN [Concomitant]
  5. EXFORGE [Concomitant]

REACTIONS (1)
  - ANXIETY [None]
